FAERS Safety Report 6100212-5 (Version None)
Quarter: 2009Q1

REPORT INFORMATION
  Report Type: 
  Country: None (occurrence: None)
  Receive Date: 20090303
  Receipt Date: 20090223
  Transmission Date: 20090719
  Serious: Yes (Death, Other)
  Sender: FDA-Public Use
  Company Number: US-ROCHE-616779

PATIENT
  Age: 61 Year
  Sex: Male

DRUGS (7)
  1. CELLCEPT [Suspect]
     Route: 065
  2. SULFAMETHOXAZOLE AND TRIMETHOPRIM [Suspect]
     Indication: PROPHYLAXIS
     Route: 065
  3. GANCICLOVIR SODIUM [Suspect]
     Route: 042
  4. TACROLIMUS [Suspect]
     Route: 065
  5. PREDNISONE [Suspect]
     Route: 065
  6. ANTITHYMOCYTE GLOBULIN [Suspect]
     Route: 065
  7. ACYCLOVIR [Suspect]
     Indication: PROPHYLAXIS
     Route: 065

REACTIONS (3)
  - CYTOMEGALOVIRUS INFECTION [None]
  - SEROMA [None]
  - STRONGYLOIDIASIS [None]
